FAERS Safety Report 5000927-6 (Version None)
Quarter: 2006Q2

REPORT INFORMATION
  Report Type: 
  Country: None (occurrence: None)
  Receive Date: 20060512
  Receipt Date: 20060413
  Transmission Date: 20061013
  Serious: Yes (Other)
  Sender: FDA-Public Use
  Company Number: PHBS2006BR05719

PATIENT
  Sex: Female

DRUGS (2)
  1. ELIDEL [Suspect]
     Indication: SEBORRHOEIC DERMATITIS
     Dosage: UNK, BID
     Route: 061
  2. HOMEOPATHIC PREPARATIONS [Concomitant]

REACTIONS (1)
  - DERMATITIS [None]
